FAERS Safety Report 7700568-3 (Version None)
Quarter: 2011Q3

REPORT INFORMATION
  Report Type: 
  Country: None (occurrence: None)
  Receive Date: 20110822
  Receipt Date: 20110810
  Transmission Date: 20111222
  Serious: Yes (Hospitalization)
  Sender: FDA-Public Use
  Company Number: CA-JNJFOC-20110806118

PATIENT
  Sex: Male
  Weight: 84 kg

DRUGS (7)
  1. CELEBREX [Concomitant]
     Route: 065
  2. REMICADE [Suspect]
     Indication: PSORIASIS
     Route: 042
     Dates: start: 20080429
  3. PLAVIX [Concomitant]
     Route: 048
  4. ACETYLSALICYLIC ACID [Concomitant]
     Route: 048
  5. SYNTHROID [Concomitant]
     Route: 065
  6. METOPROLOL [Concomitant]
     Dosage: HALF TABLET OF 25 MG
     Route: 065
  7. LIPITOR [Concomitant]
     Route: 065

REACTIONS (3)
  - NAUSEA [None]
  - ULCER HAEMORRHAGE [None]
  - ABDOMINAL DISCOMFORT [None]
